FAERS Safety Report 9301977 (Version 1)
Quarter: 2013Q2

REPORT INFORMATION
  Report Type: Spontaneous
  Country: CH (occurrence: CH)
  Receive Date: 20130521
  Receipt Date: 20130521
  Transmission Date: 20140414
  Serious: Yes (Life-Threatening, Hospitalization)
  Sender: FDA-Public Use
  Company Number: CH-PFIZER INC-2013150662

PATIENT
  Age: 85 Year
  Sex: Female

DRUGS (4)
  1. AROMASIN [Suspect]
     Indication: BREAST CANCER IN SITU
     Dosage: UNK
     Dates: start: 20120814, end: 201303
  2. AFINITOR [Suspect]
     Indication: BREAST CANCER IN SITU
     Dosage: UNK
     Dates: start: 20120814, end: 201303
  3. HERCEPTIN [Suspect]
     Indication: BREAST CANCER IN SITU
     Dosage: UNK
     Dates: start: 201109, end: 201202
  4. XELODA [Suspect]
     Indication: BREAST CANCER IN SITU
     Dosage: UNK
     Dates: start: 201109, end: 201202

REACTIONS (2)
  - Congestive cardiomyopathy [Unknown]
  - Congestive cardiomyopathy [Unknown]
